FAERS Safety Report 8694983 (Version 4)
Quarter: 2012Q4

REPORT INFORMATION
  Report Type: Report from Study
  Country: DE (occurrence: DE)
  Receive Date: 20120731
  Receipt Date: 20120924
  Transmission Date: 20130627
  Serious: Yes (Hospitalization, Other)
  Sender: FDA-Public Use
  Company Number: DE-CELGENEUS-062-21880-12072484

PATIENT
  Age: 56 Year
  Sex: Female
  Weight: 65 kg

DRUGS (13)
  1. REVLIMID [Suspect]
     Indication: MULTIPLE MYELOMA
     Route: 048
     Dates: start: 20091013, end: 20100105
  2. REVLIMID [Suspect]
     Route: 048
     Dates: start: 20100106, end: 20101123
  3. REVLIMID [Suspect]
     Route: 048
     Dates: start: 20101208
  4. REVLIMID [Suspect]
     Route: 048
     Dates: start: 20110404, end: 20110919
  5. HORMONE REPLACEMENT THERAPY [Concomitant]
     Indication: DRUG USE FOR UNKNOWN INDICATION
     Route: 065
  6. PHENPROCOUMON [Concomitant]
     Indication: THROMBOSIS PROPHYLAXIS
     Route: 065
     Dates: start: 20090315
  7. FENTANYL [Concomitant]
     Indication: BONE PAIN
     Route: 065
     Dates: start: 20090615
  8. ZOMETA [Concomitant]
     Indication: PROPHYLAXIS
     Dosage: .1333 Milligram
     Route: 065
     Dates: start: 20090722
  9. PANTOZOL [Concomitant]
     Indication: GASTRIC ULCER PROPHYLAXIS
     Dosage: 40 Milligram
     Route: 065
     Dates: start: 20090717
  10. COLECALCIFEROL [Concomitant]
     Indication: DRUG USE FOR UNKNOWN INDICATION
     Dosage: IE
     Route: 065
     Dates: start: 20100126
  11. RAMIPRIL [Concomitant]
     Indication: HYPERTENSION
     Dosage: 2.5 Milligram
     Route: 065
     Dates: start: 20100223
  12. CITALOPRAM [Concomitant]
     Indication: DEPRESSION
     Dosage: 20 Milligram
     Route: 065
     Dates: start: 20100427
  13. METAMIZOL [Concomitant]
     Indication: PAIN
     Dosage: 3 Gram
     Route: 065
     Dates: start: 20101126

REACTIONS (2)
  - Endometrial adenocarcinoma [Recovered/Resolved]
  - Uterine polyp [Recovered/Resolved]
